FAERS Safety Report 20737665 (Version 1)
Quarter: 2022Q2

REPORT INFORMATION
  Report Type: Spontaneous
  Country: US (occurrence: US)
  Receive Date: 20220422
  Receipt Date: 20220422
  Transmission Date: 20220720
  Serious: No
  Sender: FDA-Public Use
  Company Number: US-JNJFOC-20220431708

PATIENT
  Age: 83 Year
  Sex: Male

DRUGS (1)
  1. TYLENOL 8 HR ARTHRITIS PAIN [Suspect]
     Active Substance: ACETAMINOPHEN
     Indication: Analgesic therapy
     Route: 065
     Dates: start: 20220413

REACTIONS (1)
  - Polyuria [Recovered/Resolved]

NARRATIVE: CASE EVENT DATE: 20220413
